FAERS Safety Report 4293935-4 (Version None)
Quarter: 2004Q1

REPORT INFORMATION
  Report Type: 
  Country: None (occurrence: None)
  Receive Date: 20040210
  Receipt Date: 20040202
  Transmission Date: 20041129
  Serious: Yes (Hospitalization)
  Sender: FDA-Public Use
  Company Number: 000787

PATIENT
  Age: 77 Year
  Sex: Male
  Weight: 83.9 kg

DRUGS (1)
  1. METHYLPREDNISOLONE [Suspect]
     Indication: RESPIRATORY TRACT CONGESTION
     Dosage: ORAL
     Route: 048
     Dates: start: 20031101, end: 20031105

REACTIONS (3)
  - ANGINA PECTORIS [None]
  - CARDIAC DISORDER [None]
  - CHEST PAIN [None]
